FAERS Safety Report 20075854 (Version 3)
Quarter: 2022Q1

REPORT INFORMATION
  Report Type: Spontaneous
  Country: DE (occurrence: DE)
  Receive Date: 20211116
  Receipt Date: 20220114
  Transmission Date: 20220423
  Serious: Yes (Life-Threatening, Hospitalization, Other)
  Sender: FDA-Public Use
  Company Number: DE-BoehringerIngelheim-2021-BI-138524

PATIENT
  Age: 81 Year
  Sex: Female
  Weight: 92 kg

DRUGS (12)
  1. JARDIANCE [Suspect]
     Active Substance: EMPAGLIFLOZIN
     Indication: Type 2 diabetes mellitus
     Route: 048
     Dates: end: 202105
  2. EUTHYROX [Concomitant]
     Active Substance: LEVOTHYROXINE SODIUM
     Indication: Product used for unknown indication
  3. Xelevia 100 mg Filmtabletten [Concomitant]
     Indication: Product used for unknown indication
  4. Losartan Atid 50 mg [Concomitant]
     Indication: Blood pressure measurement
  5. Vitamin B-Komplex forte Hevert [Concomitant]
     Indication: Product used for unknown indication
     Dosage: STRENGTH: 100 MG/50 MG/0.5 MG
  6. MetoHEXAL-Succ 95 mg [Concomitant]
     Indication: Product used for unknown indication
  7. MAGNESIUM VERLA Brausetabletten [Concomitant]
     Indication: Product used for unknown indication
  8. VIGANTOLETTEN 1000 I.E. Tabletten 100 St N3 [Concomitant]
     Indication: Vitamin D
  9. Pregabalin - 1 A Pharma 150 mg Hartkapseln [Concomitant]
     Indication: Product used for unknown indication
     Dates: end: 20190429
  10. Metformin Atid 500 mg [Concomitant]
     Indication: Product used for unknown indication
     Dates: end: 20180412
  11. Torasemid AL 5 mg Tabletten [Concomitant]
     Indication: Product used for unknown indication
     Dates: end: 20200624
  12. AZARGA [Concomitant]
     Active Substance: BRINZOLAMIDE\TIMOLOL MALEATE
     Indication: Eye disorder
     Dosage: STRENGTH: 10 MG/ML, 5 MG/ML

REACTIONS (3)
  - Fournier^s gangrene [Not Recovered/Not Resolved]
  - Ketoacidosis [Unknown]
  - Hypokalaemia [Unknown]

NARRATIVE: CASE EVENT DATE: 20210501
